FAERS Safety Report 20034957 (Version 1)
Quarter: 2021Q4

REPORT INFORMATION
  Report Type: Spontaneous
  Country: DE (occurrence: DE)
  Receive Date: 20211104
  Receipt Date: 20211104
  Transmission Date: 20220303
  Serious: Yes (Other)
  Sender: FDA-Public Use
  Company Number: DE-GLAXOSMITHKLINE-DE2021EME161751

PATIENT
  Sex: Female
  Weight: 84 kg

DRUGS (8)
  1. VERAPAMIL [Suspect]
     Active Substance: VERAPAMIL HYDROCHLORIDE
     Indication: Hypertension
     Dosage: 2 DF, QD
     Route: 048
     Dates: start: 201707
  2. DULOXETINE [Suspect]
     Active Substance: DULOXETINE
     Indication: Mental disorder
     Dosage: 1 DF, QD
     Route: 065
     Dates: start: 202007, end: 202012
  3. VALTREX [Suspect]
     Active Substance: VALACYCLOVIR HYDROCHLORIDE
     Indication: Varicella
     Dosage: 3 DF, QD
     Route: 065
     Dates: start: 20201002, end: 202010
  4. ZIPRASIDONE [Suspect]
     Active Substance: ZIPRASIDONE
     Indication: Mental disorder
     Dosage: 1 DF, QD
     Route: 065
     Dates: start: 202007, end: 202101
  5. LEVOTHYROXINE SODIUM [Suspect]
     Active Substance: LEVOTHYROXINE SODIUM
     Indication: Thyroid disorder
     Dosage: 1 DF, QD
     Route: 065
     Dates: start: 201907
  6. TROSPIUM CHLORIDE [Suspect]
     Active Substance: TROSPIUM CHLORIDE
     Indication: Hypertonic bladder
     Dosage: 1 DF, QD
     Route: 065
     Dates: start: 201907
  7. TROSPIUM CHLORIDE [Suspect]
     Active Substance: TROSPIUM CHLORIDE
     Indication: Urge incontinence
  8. IBUPROFEN [Suspect]
     Active Substance: IBUPROFEN
     Indication: Pyrexia
     Dosage: 1 DF,IF NEEDED
     Route: 065
     Dates: start: 20201002, end: 202010

REACTIONS (1)
  - Hepatitis [Recovered/Resolved]

NARRATIVE: CASE EVENT DATE: 20201001
